FAERS Safety Report 9070762 (Version 1)
Quarter: 2013Q1

REPORT INFORMATION
  Report Type: Spontaneous
  Country: US (occurrence: US)
  Receive Date: 20130206
  Receipt Date: 20130206
  Transmission Date: 20140127
  Serious: No
  Sender: FDA-Public Use
  Company Number: US-ALLERGAN-1205120US

PATIENT
  Age: 60 None
  Sex: Female

DRUGS (2)
  1. RESTASIS? [Suspect]
     Indication: DRY EYE
     Dosage: 2 GTT, BID
     Route: 047
     Dates: start: 20120310
  2. SYSTANE [Concomitant]
     Indication: DRY EYE
     Dosage: UNK
     Route: 047

REACTIONS (5)
  - Skin discolouration [Unknown]
  - Blepharitis [Unknown]
  - Eyelid irritation [Unknown]
  - Skin exfoliation [Unknown]
  - Eye irritation [Not Recovered/Not Resolved]
